FAERS Safety Report 16425558 (Version 3)
Quarter: 2019Q4

REPORT INFORMATION
  Report Type: Spontaneous
  Country: US (occurrence: US)
  Receive Date: 20190613
  Receipt Date: 20191030
  Transmission Date: 20200122
  Serious: No
  Sender: FDA-Public Use
  Company Number: US-PFIZER INC-2019251454

PATIENT
  Age: 61 Year
  Sex: Male

DRUGS (1)
  1. VIAGRA [Suspect]
     Active Substance: SILDENAFIL CITRATE
     Indication: ERECTILE DYSFUNCTION
     Dosage: 100 MG, AS NEEDED (TAKES 1 TABLET 2-3 TIMES WEEKLY AS NEEDED BY MOUTH)
     Route: 048
     Dates: start: 2012

REACTIONS (2)
  - Blood pressure increased [Unknown]
  - Headache [Unknown]
